FAERS Safety Report 8008768-2 (Version None)
Quarter: 2011Q4

REPORT INFORMATION
  Report Type: 
  Country: None (occurrence: None)
  Receive Date: 20111227
  Receipt Date: 20111221
  Transmission Date: 20120403
  Serious: Yes (Hospitalization, Other)
  Sender: FDA-Public Use
  Company Number: US-BAYER-2011-096347

PATIENT
  Age: 88 Year
  Sex: Male
  Weight: 88.435 kg

DRUGS (15)
  1. NEXAVAR [Suspect]
     Indication: HEPATIC NEOPLASM MALIGNANT
     Dosage: 200 MG, QD
     Route: 048
     Dates: start: 20110923
  2. LIPITOR [Concomitant]
     Dosage: 10 MG, 3 TIMES PER WEEK
     Dates: start: 20081001
  3. ADVAIR DISKUS 100/50 [Concomitant]
     Indication: ASTHMA
     Dosage: 100/50
     Dates: start: 20050527
  4. NEXIUM [Concomitant]
     Indication: GASTROOESOPHAGEAL REFLUX DISEASE
     Dosage: 40 MG, QD
     Dates: start: 20060101
  5. CENTRUM [Concomitant]
     Dosage: 1 PER DAY
     Dates: start: 19950101
  6. SPIRIVA [Concomitant]
     Indication: ASTHMA
     Dosage: 2 PUFFS QD
     Dates: start: 20081001
  7. UROXATRAL [Concomitant]
     Dosage: 10 MG, QD
     Dates: start: 20070504
  8. FORTEO [Concomitant]
     Indication: OSTEOPOROSIS
     Dosage: 1 SHOT PER DAY
     Dates: start: 20110601
  9. METOPROLOL SUCCINATE [Concomitant]
     Indication: HYPERTENSION
     Dosage: 12.5 MG, BID
     Dates: start: 20081001
  10. INTEGRA PLUS [Concomitant]
     Indication: MINERAL SUPPLEMENTATION
     Dosage: 106 MG, QD
     Dates: start: 20090707
  11. PROCRIT [Concomitant]
     Indication: HAEMOGLOBIN DECREASED
     Dosage: PRN
     Dates: start: 20080707
  12. POTASSIUM CHLORIDE [Concomitant]
     Dosage: 10 MG QD
     Dates: start: 20080101
  13. AMBIEN [Concomitant]
     Indication: SLEEP DISORDER
     Dosage: 10 MG PRN
     Dates: start: 20101101
  14. LASIX [Concomitant]
     Indication: FLUID RETENTION
     Dosage: 40 MG QD
     Dates: start: 20081001
  15. DOCUSATE [Concomitant]
     Dosage: 100 MG
     Dates: start: 20040601

REACTIONS (6)
  - SKIN DISORDER [None]
  - COUGH [None]
  - GLOSSITIS [None]
  - PLATELET COUNT DECREASED [None]
  - PARAESTHESIA [None]
  - HAEMOPTYSIS [None]
